FAERS Safety Report 15633958 (Version 1)
Quarter: 2018Q4

REPORT INFORMATION
  Report Type: Spontaneous
  Country: FR (occurrence: FR)
  Receive Date: 20181119
  Receipt Date: 20181119
  Transmission Date: 20190205
  Serious: Yes (Death)
  Sender: FDA-Public Use
  Company Number: FR-ASTRAZENECA-2018SF50781

PATIENT
  Age: 71 Year
  Sex: Female
  Weight: 95 kg

DRUGS (10)
  1. GAVISCON [Concomitant]
     Active Substance: ALUMINUM HYDROXIDE\MAGNESIUM CARBONATE
  2. LOVENOX [Interacting]
     Active Substance: ENOXAPARIN SODIUM
     Indication: ACUTE CORONARY SYNDROME
     Route: 058
     Dates: start: 20180910, end: 20180928
  3. XANAX [Concomitant]
     Active Substance: ALPRAZOLAM
  4. COVERSYL [Concomitant]
     Active Substance: PERINDOPRIL
  5. SPIRONOLACTONE. [Concomitant]
     Active Substance: SPIRONOLACTONE
  6. BRILIQUE [Suspect]
     Active Substance: TICAGRELOR
     Indication: ACUTE CORONARY SYNDROME
     Route: 048
     Dates: start: 20180905, end: 20180928
  7. CRESTOR [Concomitant]
     Active Substance: ROSUVASTATIN CALCIUM
  8. KARDEGIC [Interacting]
     Active Substance: ASPIRIN DL-LYSINE
     Indication: OEDEMA
     Route: 048
     Dates: start: 19980101, end: 20180928
  9. EUPANTOL [Concomitant]
     Active Substance: PANTOPRAZOLE SODIUM
  10. BISOCE [Concomitant]
     Active Substance: BISOPROLOL

REACTIONS (2)
  - Drug interaction [Fatal]
  - Haemorrhagic stroke [Fatal]

NARRATIVE: CASE EVENT DATE: 20180905
